FAERS Safety Report 17035781 (Version 1)
Quarter: 2019Q4

REPORT INFORMATION
  Report Type: Spontaneous
  Country: US (occurrence: US)
  Receive Date: 20191114
  Receipt Date: 20191114
  Transmission Date: 20200122
  Serious: No
  Sender: FDA-Public Use
  Company Number: None

PATIENT
  Age: 28 Year
  Sex: Female

DRUGS (1)
  1. CREST PRO-HEALTH RINSE [Suspect]
     Active Substance: CETYLPYRIDINIUM CHLORIDE
     Indication: GINGIVITIS
     Dosage: ?          OTHER ROUTE:MOUTHWASH?
     Dates: start: 20191109, end: 20191114

REACTIONS (3)
  - Gingival pain [None]
  - Tongue discomfort [None]
  - Noninfective gingivitis [None]

NARRATIVE: CASE EVENT DATE: 20191109
